FAERS Safety Report 12546635 (Version 2)
Quarter: 2016Q4

REPORT INFORMATION
  Report Type: Spontaneous
  Country: FR (occurrence: FR)
  Receive Date: 20160711
  Receipt Date: 20161228
  Transmission Date: 20170207
  Serious: Yes (Hospitalization, Other)
  Sender: FDA-Public Use
  Company Number: FR-BRISTOL-MYERS SQUIBB COMPANY-BMS-2016-021944

PATIENT
  Sex: Female

DRUGS (3)
  1. KENACORT [Suspect]
     Active Substance: TRIAMCINOLONE
     Indication: OSTEOARTHRITIS
     Route: 065
  2. KENACORT [Suspect]
     Active Substance: TRIAMCINOLONE
     Indication: HIATUS HERNIA
     Dosage: 80 MG, QD
     Route: 065
     Dates: start: 20151016
  3. XYLOCAINE [Concomitant]
     Active Substance: LIDOCAINE HYDROCHLORIDE
     Indication: LOCAL ANAESTHESIA
     Dosage: UNK
     Route: 065
     Dates: start: 20151016

REACTIONS (2)
  - Anaphylactic shock [Recovering/Resolving]
  - Spinal operation [Unknown]
